FAERS Safety Report 23409534 (Version 1)
Quarter: 2024Q1

REPORT INFORMATION
  Report Type: Spontaneous
  Country: US (occurrence: US)
  Receive Date: 20240117
  Receipt Date: 20240117
  Transmission Date: 20240410
  Serious: Yes (Death, Hospitalization, Other)
  Sender: FDA-Public Use
  Company Number: US-009507513-2401USA005537

PATIENT
  Sex: Male

DRUGS (3)
  1. KEYTRUDA [Suspect]
     Active Substance: PEMBROLIZUMAB
     Indication: Bladder cancer
     Dosage: UNK, EVERY 3 WEEKS (Q3W)
     Route: 042
     Dates: start: 20230324, end: 20230505
  2. FLUDEOXYGLUCOSE F-18 [Suspect]
     Active Substance: FLUDEOXYGLUCOSE F-18
     Dosage: 17.3 MICROCI, ONCE
     Route: 042
     Dates: start: 20230512, end: 20230512
  3. MORNIFLUMATE [Concomitant]
     Active Substance: MORNIFLUMATE
     Dosage: UNK

REACTIONS (8)
  - Lung disorder [Fatal]
  - Pleural effusion [Fatal]
  - Ischaemic stroke [Unknown]
  - Hospice care [Unknown]
  - Palliative care [Unknown]
  - Urinary tract infection [Unknown]
  - Oxygen saturation decreased [Unknown]
  - Heart rate decreased [Unknown]

NARRATIVE: CASE EVENT DATE: 20230101
